FAERS Safety Report 9899490 (Version 1)
Quarter: 2014Q1

REPORT INFORMATION
  Report Type: Spontaneous
  Country: US (occurrence: US)
  Receive Date: 20140214
  Receipt Date: 20140214
  Transmission Date: 20141002
  Serious: Yes (Other)
  Sender: FDA-Public Use
  Company Number: US-PFIZER INC-2014042795

PATIENT
  Age: 52 Year
  Sex: Female
  Weight: 56.69 kg

DRUGS (4)
  1. LYRICA [Suspect]
     Indication: NEURALGIA
     Dosage: UNK
     Dates: start: 2011, end: 2014
  2. LYRICA [Suspect]
     Indication: SPINAL DISORDER
  3. LYRICA [Suspect]
     Indication: HERPES ZOSTER
  4. LISINOPRIL [Concomitant]
     Indication: BLOOD PRESSURE ABNORMAL
     Dosage: UNK

REACTIONS (1)
  - Spinal disorder [Unknown]
